FAERS Safety Report 8537680-5 (Version None)
Quarter: 2012Q3

REPORT INFORMATION
  Report Type: 
  Country: None (occurrence: None)
  Receive Date: 20120712
  Receipt Date: 20120628
  Transmission Date: 20120928
  Serious: Yes (Other)
  Sender: FDA-Public Use
  Company Number: VAL_00786_2012

PATIENT
  Age: 63 Year
  Sex: Female

DRUGS (2)
  1. ROCALTROL [Suspect]
     Indication: PRODUCT USED FOR UNKNOWN INDICATION
     Dosage: 0.25 ?G TID ORAL
     Route: 048
     Dates: start: 20111117, end: 20120416
  2. CALCIUM-SANDOZ/00751528/ (CALCIUM -SANDOZ-CALCIUM GLUBIONATE (NOT SPEC [Suspect]
     Indication: PRODUCT USED FOR UNKNOWN INDICATION
     Dosage: 3 DF QD ORAL
     Route: 048
     Dates: start: 20111117, end: 20120406

REACTIONS (3)
  - DRUG INTERACTION [None]
  - RENAL FAILURE ACUTE [None]
  - HYPERCALCAEMIA [None]
